FAERS Safety Report 5209757-3 (Version None)
Quarter: 2006Q4

REPORT INFORMATION
  Report Type: 
  Country: None (occurrence: None)
  Receive Date: 20061128
  Receipt Date: 20060313
  Transmission Date: 20070319
  Serious: Yes (Other)
  Sender: FDA-Public Use
  Company Number: 2005173263

PATIENT
  Age: 56 Year
  Sex: Male
  Weight: 130.1823 kg

DRUGS (4)
  1. TIKOSYN [Suspect]
     Indication: ATRIAL FIBRILLATION
     Dosage: 1000 MCG (500 MCG, 2 IN 1 D)
     Dates: start: 20051217, end: 20051224
  2. COUMADIN [Concomitant]
  3. TOPROL-XL [Concomitant]
  4. ADVIL [Concomitant]

REACTIONS (1)
  - DRUG INEFFECTIVE [None]
